FAERS Safety Report 18885964 (Version 2)
Quarter: 2021Q1

REPORT INFORMATION
  Report Type: Spontaneous
  Country: US (occurrence: US)
  Receive Date: 20210212
  Receipt Date: 20210315
  Transmission Date: 20210420
  Serious: No
  Sender: FDA-Public Use
  Company Number: US-JNJFOC-20210200853

PATIENT
  Sex: Male

DRUGS (1)
  1. ZYRTEC [Suspect]
     Active Substance: CETIRIZINE HYDROCHLORIDE
     Indication: MULTIPLE ALLERGIES
     Dosage: LAST DRUG ADMIN DATE: 27/JAN/2021; TAKING IT FOR A COUPLE OF WEEKS
     Route: 048
     Dates: start: 20210115

REACTIONS (1)
  - Drug ineffective [Unknown]
